FAERS Safety Report 16122105 (Version 1)
Quarter: 2019Q1

REPORT INFORMATION
  Report Type: Spontaneous
  Country: US (occurrence: US)
  Receive Date: 20190327
  Receipt Date: 20190327
  Transmission Date: 20190418
  Serious: No
  Sender: FDA-Public Use
  Company Number: US-PFIZER INC-2019119702

PATIENT
  Age: 84 Year
  Sex: Female

DRUGS (2)
  1. XANAX [Suspect]
     Active Substance: ALPRAZOLAM
     Dosage: 0.5 MG, UNK
  2. XANAX [Suspect]
     Active Substance: ALPRAZOLAM
     Dosage: 1 MG, UNK

REACTIONS (2)
  - Drug ineffective [Unknown]
  - Intentional product misuse [Unknown]
